FAERS Safety Report 8272557-4 (Version None)
Quarter: 2012Q2

REPORT INFORMATION
  Report Type: 
  Country: None (occurrence: None)
  Receive Date: 20120410
  Receipt Date: 20120406
  Transmission Date: 20120825
  Serious: Yes (Hospitalization, Other)
  Sender: FDA-Public Use
  Company Number: US-MERCK-1109USA01908

PATIENT
  Age: 52 Year
  Sex: Female
  Weight: 59 kg

DRUGS (6)
  1. FOSAMAX [Suspect]
     Indication: OSTEOPOROSIS POSTMENOPAUSAL
     Route: 048
     Dates: end: 20061225
  2. CLARITIN [Concomitant]
     Route: 048
  3. FOSAMAX PLUS D [Suspect]
     Indication: OSTEOPOROSIS POSTMENOPAUSAL
     Route: 048
     Dates: start: 20061226, end: 20090802
  4. FOSAMAX [Suspect]
     Route: 048
     Dates: start: 19950101
  5. ACTONEL [Suspect]
     Route: 065
  6. CALCIUM (UNSPECIFIED) [Concomitant]
     Route: 048

REACTIONS (37)
  - DIZZINESS [None]
  - VERTIGO [None]
  - POSTMENOPAUSAL HAEMORRHAGE [None]
  - DEAFNESS NEUROSENSORY [None]
  - ARTHROPATHY [None]
  - FALL [None]
  - ECCHYMOSIS [None]
  - DIVERTICULUM [None]
  - MENISCUS LESION [None]
  - SURGICAL FAILURE [None]
  - MYOCARDIAL INFARCTION [None]
  - ACUTE SINUSITIS [None]
  - CERUMEN IMPACTION [None]
  - PALPITATIONS [None]
  - DEAFNESS TRAUMATIC [None]
  - TYPE V HYPERLIPIDAEMIA [None]
  - LIGAMENT SPRAIN [None]
  - FLATULENCE [None]
  - TOOTH DISORDER [None]
  - TINEA PEDIS [None]
  - LOCAL SWELLING [None]
  - FEMUR FRACTURE [None]
  - DEVICE FAILURE [None]
  - SYNOVITIS [None]
  - ESSENTIAL HYPERTENSION [None]
  - POLYP [None]
  - BURSITIS [None]
  - FIBULA FRACTURE [None]
  - MUCOSAL MEMBRANE HYPERPLASIA [None]
  - LOWER LIMB FRACTURE [None]
  - CHEST DISCOMFORT [None]
  - PATELLOFEMORAL PAIN SYNDROME [None]
  - TIBIA FRACTURE [None]
  - HAEMORRHOIDS [None]
  - OTITIS EXTERNA [None]
  - PRESBYACUSIS [None]
  - FATIGUE [None]
